FAERS Safety Report 6877107-2 (Version None)
Quarter: 2010Q3

REPORT INFORMATION
  Report Type: 
  Country: None (occurrence: None)
  Receive Date: 20100727
  Receipt Date: 20100726
  Transmission Date: 20110219
  Serious: Yes (Hospitalization)
  Sender: FDA-Public Use
  Company Number: IT-MERCK-1004ITA00001

PATIENT
  Age: 64 Year
  Sex: Female

DRUGS (4)
  1. JANUVIA [Suspect]
     Indication: TYPE 2 DIABETES MELLITUS
     Route: 048
     Dates: start: 20090324
  2. METFORMIN [Concomitant]
     Route: 048
     Dates: start: 20080129
  3. LEVOTHYROXINE SODIUM [Concomitant]
     Route: 048
     Dates: start: 20051214, end: 20100304
  4. ATORVASTATIN CALCIUM [Concomitant]
     Route: 048
     Dates: start: 20081020, end: 20100304

REACTIONS (1)
  - BREAST CANCER [None]
